FAERS Safety Report 5375774-6 (Version None)
Quarter: 2007Q2

REPORT INFORMATION
  Report Type: 
  Country: None (occurrence: None)
  Receive Date: 20070628
  Receipt Date: 20070620
  Transmission Date: 20071010
  Serious: Yes (Disabling)
  Sender: FDA-Public Use
  Company Number: 163-20785-07050897

PATIENT
  Age: 53 Year
  Sex: Female

DRUGS (17)
  1. THALOMID [Suspect]
     Indication: MULTIPLE MYELOMA
     Dosage: SEE IMAGE
     Route: 048
     Dates: start: 20070103, end: 20070101
  2. THALOMID [Suspect]
     Indication: MULTIPLE MYELOMA
     Dosage: SEE IMAGE
     Route: 048
     Dates: start: 20070123
  3. DECADRON [Suspect]
     Indication: MULTIPLE MYELOMA
     Dosage: 40 MG, DAYS 1-4 MONTHLY, ORAL
     Route: 048
  4. ROXICODONE (OXYCODONE HYDROCHLORIDE) (TABLETS) [Concomitant]
  5. OXYCONTIN (OXYCODONE HYDROCHLORIDE) (TABLETS) [Concomitant]
  6. MULTIVITAMINS (MULTIVITAMIN ^LAPPE^) [Concomitant]
  7. DULCOLAX [Concomitant]
  8. GLYCOLAX (MACROGOL) (POWDER) [Concomitant]
  9. ACETAMINOPHEN [Concomitant]
  10. SENOKOT [Concomitant]
  11. PROTONIX [Concomitant]
  12. CITALOPRAM HYDROBROMIDE [Concomitant]
  13. XANAX [Concomitant]
  14. COUMADIN [Concomitant]
  15. NEURONTIN [Concomitant]
  16. VITAMIN D [Concomitant]
  17. OMEPRAZOLE [Concomitant]

REACTIONS (4)
  - DISEASE PROGRESSION [None]
  - HAEMATOCRIT DECREASED [None]
  - HAEMOGLOBIN DECREASED [None]
  - IMPAIRED SELF-CARE [None]
